FAERS Safety Report 19439024 (Version 1)
Quarter: 2021Q2

REPORT INFORMATION
  Report Type: Report from Study
  Country: EG (occurrence: EG)
  Receive Date: 20210618
  Receipt Date: 20210618
  Transmission Date: 20210717
  Serious: Yes (Other)
  Sender: FDA-Public Use
  Company Number: NVSC2021EG133002

PATIENT
  Age: 20 Year
  Sex: Female

DRUGS (2)
  1. TASIGNA [Suspect]
     Active Substance: NILOTINIB
     Indication: CHRONIC MYELOID LEUKAEMIA
     Dosage: 600 MG, QD
     Route: 048
     Dates: start: 202103
  2. TASIGNA [Suspect]
     Active Substance: NILOTINIB
     Dosage: 450 MG, QD
     Route: 065

REACTIONS (3)
  - Contusion [Not Recovered/Not Resolved]
  - Thrombocytopenia [Recovering/Resolving]
  - Amenorrhoea [Not Recovered/Not Resolved]

NARRATIVE: CASE EVENT DATE: 202103
